FAERS Safety Report 14650731 (Version 2)
Quarter: 2018Q1

REPORT INFORMATION
  Report Type: Spontaneous
  Country: CA (occurrence: CA)
  Receive Date: 20180316
  Receipt Date: 20180320
  Transmission Date: 20180509
  Serious: Yes (Hospitalization, Other)
  Sender: FDA-Public Use
  Company Number: CA-009507513-1507CAN004392

PATIENT
  Age: 70 Year
  Sex: Female

DRUGS (1)
  1. INTRON A [Suspect]
     Active Substance: INTERFERON ALFA-2B
     Indication: POLYCYTHAEMIA VERA
     Dosage: 3 MILLION IU, MONDAY, WEDNESDAY AND FRIDAY (THREE TIMES PER WEEK)
     Route: 058
     Dates: start: 20141002

REACTIONS (7)
  - Inappropriate schedule of drug administration [Unknown]
  - Product use in unapproved indication [Unknown]
  - Dyspnoea [Not Recovered/Not Resolved]
  - Drug dose omission [Unknown]
  - Gastrointestinal vascular malformation haemorrhagic [Recovered/Resolved]
  - Rash pruritic [Unknown]
  - Arthritis [Unknown]

NARRATIVE: CASE EVENT DATE: 20141002
